FAERS Safety Report 22028362 (Version 1)
Quarter: 2023Q1

REPORT INFORMATION
  Report Type: Spontaneous
  Country: CN (occurrence: CN)
  Receive Date: 20230223
  Receipt Date: 20230223
  Transmission Date: 20230417
  Serious: Yes (Hospitalization, Other)
  Sender: FDA-Public Use
  Company Number: CN-BAYER-2023A022606

PATIENT
  Age: 61 Year
  Sex: Male
  Weight: 52 kg

DRUGS (2)
  1. ULTRAVIST [Suspect]
     Active Substance: IOPROMIDE
     Indication: Oesophageal carcinoma
     Dosage: 1 DF, ONCE
     Route: 041
     Dates: start: 20230219, end: 20230219
  2. ULTRAVIST [Suspect]
     Active Substance: IOPROMIDE
     Indication: Imaging procedure

REACTIONS (7)
  - Anaphylactic shock [Recovering/Resolving]
  - Amaurosis [None]
  - Syncope [Recovered/Resolved]
  - Rash erythematous [Recovering/Resolving]
  - Blood pressure decreased [Recovered/Resolved]
  - Dizziness [None]
  - Incorrect drug administration rate [None]

NARRATIVE: CASE EVENT DATE: 20230219
